FAERS Safety Report 4588211-6 (Version None)
Quarter: 2005Q1

REPORT INFORMATION
  Report Type: 
  Country: None (occurrence: None)
  Receive Date: 20050221
  Receipt Date: 20041215
  Transmission Date: 20050727
  Serious: Yes (Death, Life-Threatening, Hospitalization)
  Sender: FDA-Public Use
  Company Number: JP-ROCHE-389459

PATIENT
  Age: 22 Year
  Sex: Female

DRUGS (47)
  1. CELLCEPT [Suspect]
     Route: 048
     Dates: start: 20021222, end: 20030105
  2. CELLCEPT [Suspect]
     Route: 048
     Dates: start: 20030528, end: 20030904
  3. PROGRAF [Suspect]
     Indication: PROPHYLAXIS AGAINST TRANSPLANT REJECTION
     Route: 041
     Dates: start: 20021211, end: 20021229
  4. PROGRAF [Suspect]
     Route: 041
     Dates: start: 20021230, end: 20030202
  5. PROGRAF [Suspect]
     Route: 048
     Dates: start: 20030203, end: 20030204
  6. PROGRAF [Suspect]
     Route: 048
     Dates: start: 20030205, end: 20030209
  7. PROGRAF [Suspect]
     Route: 048
     Dates: start: 20030210, end: 20030213
  8. PROGRAF [Suspect]
     Route: 048
     Dates: start: 20030214, end: 20030312
  9. PROGRAF [Suspect]
     Route: 048
     Dates: start: 20030313, end: 20030315
  10. PROGRAF [Suspect]
     Route: 048
     Dates: start: 20030316, end: 20030430
  11. PROGRAF [Suspect]
     Route: 048
     Dates: start: 20030501, end: 20030802
  12. PROGRAF [Suspect]
     Route: 048
     Dates: start: 20030803, end: 20030810
  13. PROGRAF [Suspect]
     Route: 048
     Dates: start: 20030811, end: 20030827
  14. PROGRAF [Suspect]
     Route: 048
     Dates: start: 20030828, end: 20030902
  15. PROGRAF [Suspect]
     Route: 048
     Dates: start: 20030903, end: 20030910
  16. PROGRAF [Suspect]
     Route: 048
     Dates: start: 20030911, end: 20030921
  17. PROGRAF [Suspect]
     Route: 048
     Dates: start: 20030922, end: 20031101
  18. PROGRAF [Suspect]
     Route: 048
     Dates: start: 20031102, end: 20031213
  19. PROGRAF [Suspect]
     Route: 048
     Dates: start: 20031214, end: 20031220
  20. PROGRAF [Suspect]
     Route: 048
     Dates: start: 20031221, end: 20031227
  21. PREDONINE [Suspect]
     Indication: PROPHYLAXIS AGAINST TRANSPLANT REJECTION
     Route: 065
     Dates: start: 20021217, end: 20030112
  22. PREDONINE [Suspect]
     Route: 065
     Dates: start: 20030113, end: 20030119
  23. PREDONINE [Suspect]
     Route: 065
     Dates: start: 20030120, end: 20030125
  24. PREDONINE [Suspect]
     Route: 065
     Dates: start: 20030126, end: 20030204
  25. PREDONINE [Suspect]
     Route: 065
     Dates: start: 20030205, end: 20030302
  26. PREDONINE [Suspect]
     Route: 065
     Dates: start: 20030303, end: 20030309
  27. PREDONINE [Suspect]
     Route: 065
     Dates: start: 20030310, end: 20030319
  28. PREDONINE [Suspect]
     Route: 065
     Dates: start: 20030320, end: 20030321
  29. PREDONINE [Suspect]
     Route: 065
     Dates: start: 20030322, end: 20030402
  30. PREDONINE [Suspect]
     Route: 065
     Dates: start: 20030403, end: 20030409
  31. PREDONINE [Suspect]
     Route: 065
     Dates: start: 20030410, end: 20030416
  32. PREDONINE [Suspect]
     Route: 065
     Dates: start: 20030417, end: 20030423
  33. PREDONINE [Suspect]
     Route: 065
     Dates: start: 20030424, end: 20030507
  34. PREDONINE [Suspect]
     Route: 065
     Dates: start: 20030508, end: 20030802
  35. PREDONINE [Suspect]
     Route: 065
     Dates: start: 20030803, end: 20030913
  36. PREDONINE [Suspect]
     Route: 065
     Dates: start: 20030914
  37. PREDNISOLONE [Concomitant]
     Indication: HODGKIN'S DISEASE
  38. FK506 [Concomitant]
  39. METHOTREXATE [Concomitant]
  40. CYCLOPHOSPHAMIDE [Concomitant]
     Indication: HODGKIN'S DISEASE
  41. VINCRISTINE SULFATE [Concomitant]
     Indication: HODGKIN'S DISEASE
  42. NATULAN [Concomitant]
     Indication: HODGKIN'S DISEASE
  43. ADRIACIN [Concomitant]
     Indication: HODGKIN'S DISEASE
  44. BLEOMYCIN HYDROCHLORIDE [Concomitant]
     Indication: HODGKIN'S DISEASE
  45. VINBLASTINE SULFATE [Concomitant]
     Indication: HODGKIN'S DISEASE
  46. DACARBAZINE [Concomitant]
     Indication: HODGKIN'S DISEASE
  47. ETOPOSIDE [Concomitant]
     Indication: HODGKIN'S DISEASE

REACTIONS (4)
  - BRAIN HERNIATION [None]
  - BRAIN NEOPLASM [None]
  - CEREBRAL TOXOPLASMOSIS [None]
  - CONVULSION [None]
